FAERS Safety Report 23827576 (Version 1)
Quarter: 2024Q2

REPORT INFORMATION
  Report Type: Spontaneous
  Country: SE (occurrence: SE)
  Receive Date: 20240507
  Receipt Date: 20240507
  Transmission Date: 20240716
  Serious: Yes (Other)
  Sender: FDA-Public Use
  Company Number: None

PATIENT
  Age: 27 Year
  Sex: Male

DRUGS (3)
  1. SERTRALINE [Suspect]
     Active Substance: SERTRALINE HYDROCHLORIDE
     Indication: Depression
     Dosage: UNK, 0,5 - 1
     Route: 048
     Dates: start: 20240405, end: 20240412
  2. TRILEPTAL [Concomitant]
     Active Substance: OXCARBAZEPINE
     Dosage: 300 MILLIGRAM, BID
     Route: 065
     Dates: start: 20170404
  3. PROPIOMAZINE [Concomitant]
     Active Substance: PROPIOMAZINE
     Dosage: UNK, QD, 1-2 AT NIGHT
     Route: 065
     Dates: start: 20240405

REACTIONS (1)
  - Memory impairment [Recovered/Resolved]

NARRATIVE: CASE EVENT DATE: 20240405
